FAERS Safety Report 5025444-9 (Version None)
Quarter: 2006Q2

REPORT INFORMATION
  Report Type: 
  Country: None (occurrence: None)
  Receive Date: 20060608
  Receipt Date: 20060426
  Transmission Date: 20061013
  Serious: Yes (Hospitalization, Other)
  Sender: FDA-Public Use
  Company Number: 2006058961

PATIENT
  Age: 55 Year
  Sex: Male

DRUGS (1)
  1. BEXTRA [Suspect]
     Indication: BACK PAIN
     Dosage: 20 MG (20 MG, 1 IN 1 D),
     Dates: start: 20031001

REACTIONS (10)
  - ANGINA PECTORIS [None]
  - ARRHYTHMIA [None]
  - ATRIOVENTRICULAR BLOCK COMPLETE [None]
  - CORONARY ARTERY DISEASE [None]
  - DEPRESSION [None]
  - ECHOCARDIOGRAM ABNORMAL [None]
  - HERNIA REPAIR [None]
  - LOWER LIMB FRACTURE [None]
  - MITRAL VALVE DISEASE [None]
  - PROSTATE CANCER [None]
